FAERS Safety Report 8445663-9 (Version None)
Quarter: 2012Q2

REPORT INFORMATION
  Report Type: 
  Country: None (occurrence: None)
  Receive Date: 20120618
  Receipt Date: 20120608
  Transmission Date: 20120825
  Serious: Yes (Other)
  Sender: FDA-Public Use
  Company Number: US-JNJFOC-20120605019

PATIENT
  Sex: Male
  Weight: 54.2 kg

DRUGS (11)
  1. FISH OIL [Concomitant]
  2. FERROUS SULFATE TAB [Concomitant]
  3. REMICADE [Suspect]
     Indication: CROHN'S DISEASE
     Dosage: DOSE INCREASED TO 7.5 MG/KG
     Route: 042
     Dates: start: 20120426
  4. ALBUTEROL [Concomitant]
  5. MESALAMINE [Concomitant]
  6. CITRACAL W / VITAMIN D [Concomitant]
  7. MULTI-VITAMINS [Concomitant]
  8. PROTONIX [Concomitant]
  9. PREDNISONE [Concomitant]
  10. REMICADE [Suspect]
     Dosage: DOSE NOT SPECIFIED
     Route: 042
     Dates: start: 20110921
  11. REMICADE [Suspect]
     Dosage: INCREASED AT WEEK 6
     Route: 042
     Dates: start: 20120101

REACTIONS (1)
  - CROHN'S DISEASE [None]
